FAERS Safety Report 5881150-X (Version None)
Quarter: 2008Q3

REPORT INFORMATION
  Report Type: 
  Country: None (occurrence: None)
  Receive Date: 20080912
  Receipt Date: 20080619
  Transmission Date: 20090109
  Serious: No
  Sender: FDA-Public Use
  Company Number: US-ABBOTT-08P-163-0458772-00

PATIENT
  Sex: Female
  Weight: 47.67 kg

DRUGS (12)
  1. HUMIRA [Suspect]
     Indication: RHEUMATOID ARTHRITIS
     Route: 058
     Dates: start: 20071101
  2. METHOTREXATE [Concomitant]
     Indication: RHEUMATOID ARTHRITIS
     Route: 048
     Dates: start: 20080131
  3. OMEPRAZOLE MAGNESIUM [Concomitant]
     Indication: DRUG USE FOR UNKNOWN INDICATION
     Route: 048
  4. PREDNISONE TAB [Concomitant]
     Indication: DRUG USE FOR UNKNOWN INDICATION
     Route: 048
  5. ^NATURE'S THYROID^ [Concomitant]
     Indication: THYROID HORMONE REPLACEMENT THERAPY
     Route: 048
  6. FENTANYL [Concomitant]
     Indication: RHEUMATOID ARTHRITIS
     Route: 062
  7. FOLIC ACID [Concomitant]
     Indication: PREMEDICATION
     Route: 048
  8. TYLOX [Concomitant]
     Indication: PAIN
     Dosage: 10/325 MILLIGRAM
     Route: 048
  9. ASCORBIC ACID [Concomitant]
     Indication: DRUG USE FOR UNKNOWN INDICATION
  10. ^AGLUTAMIDE^ [Concomitant]
     Indication: DRUG USE FOR UNKNOWN INDICATION
  11. ALUDROX [Concomitant]
     Indication: DRUG USE FOR UNKNOWN INDICATION
  12. CYANOCOBALAMIN [Concomitant]
     Indication: DRUG USE FOR UNKNOWN INDICATION

REACTIONS (2)
  - HAEMOGLOBIN DECREASED [None]
  - WEIGHT DECREASED [None]
